FAERS Safety Report 25051315 (Version 1)
Quarter: 2025Q1

REPORT INFORMATION
  Report Type: Spontaneous
  Country: FR (occurrence: FR)
  Receive Date: 20250307
  Receipt Date: 20250307
  Transmission Date: 20250408
  Serious: Yes (Other)
  Sender: ALEXION PHARMACEUTICALS
  Company Number: FR-SA-2025SA065113

PATIENT
  Age: 7 Month
  Weight: 9 kg

DRUGS (1)
  1. BEYFORTUS [Suspect]
     Active Substance: NIRSEVIMAB-ALIP
     Indication: Respiratory syncytial virus immunisation
     Dosage: 100 MG, 1X

REACTIONS (1)
  - Respiratory syncytial virus bronchiolitis [Recovered/Resolved]
